FAERS Safety Report 7864270-X (Version None)
Quarter: 2011Q4

REPORT INFORMATION
  Report Type: 
  Country: None (occurrence: None)
  Receive Date: 20111028
  Receipt Date: 20101117
  Transmission Date: 20120403
  Serious: No
  Sender: FDA-Public Use
  Company Number: US-GLAXOSMITHKLINE-A0860860A

PATIENT
  Age: 64 Year
  Sex: Female

DRUGS (5)
  1. METFORMIN HCL [Concomitant]
  2. MEDICATION FOR HIGH BLOOD PRESSURE [Concomitant]
  3. ANTI-CHOLESTEROL MEDICATION [Concomitant]
  4. OS-CAL [Concomitant]
  5. SEREVENT [Suspect]
     Indication: ASTHMA
     Dosage: 1PUFF PER DAY
     Route: 055
     Dates: start: 20080101

REACTIONS (4)
  - DYSPNOEA EXERTIONAL [None]
  - FATIGUE [None]
  - DYSPNOEA [None]
  - PRODUCT QUALITY ISSUE [None]
